FAERS Safety Report 19995605 (Version 2)
Quarter: 2021Q4

REPORT INFORMATION
  Report Type: Spontaneous
  Country: US (occurrence: US)
  Receive Date: 20211025
  Receipt Date: 20211203
  Transmission Date: 20220304
  Serious: No
  Sender: FDA-Public Use
  Company Number: US-BAUSCH-BL-2021-035272

PATIENT
  Age: 73 Year
  Sex: Male
  Weight: 122.58 kg

DRUGS (1)
  1. LORAZEPAM [Suspect]
     Active Substance: LORAZEPAM
     Indication: Product used for unknown indication
     Route: 065

REACTIONS (2)
  - Drug ineffective [Unknown]
  - Product substitution issue [Unknown]
